FAERS Safety Report 16279212 (Version 7)
Quarter: 2020Q3

REPORT INFORMATION
  Report Type: Spontaneous
  Country: JP (occurrence: JP)
  Receive Date: 20190506
  Receipt Date: 20200806
  Transmission Date: 20201102
  Serious: Yes (Hospitalization)
  Sender: FDA-Public Use
  Company Number: JP-PFIZER INC-2019171691

PATIENT
  Age: 76 Year
  Sex: Female

DRUGS (4)
  1. METHYCOBAL [Concomitant]
     Active Substance: METHYLCOBALAMIN
     Dosage: 500 MG, CYCLIC (EVERY 8 HOURS)
     Route: 048
     Dates: start: 20180119
  2. MUCOSTA [Concomitant]
     Active Substance: REBAMIPIDE
     Dosage: 100 MG, AS NEEDED
     Route: 048
     Dates: start: 20180119
  3. CELECOX [Suspect]
     Active Substance: CELECOXIB
     Dosage: 200 MG/DAY, AS NEEDED
     Route: 048
     Dates: start: 20180119
  4. BILANOA [Suspect]
     Active Substance: BILASTINE
     Indication: SEASONAL ALLERGY
     Dosage: 20 MG/DAY
     Route: 048
     Dates: start: 20190412, end: 20190414

REACTIONS (12)
  - Nausea [Recovered/Resolved]
  - Cold sweat [Unknown]
  - Fatigue [Unknown]
  - Pruritus [Recovered/Resolved]
  - Insomnia [Unknown]
  - Gastric ulcer haemorrhage [Recovering/Resolving]
  - Shock symptom [Recovered/Resolved]
  - Discomfort [Unknown]
  - Pollakiuria [Unknown]
  - Gastric ulcer [Unknown]
  - Pruritus [Recovered/Resolved]
  - Haemoglobin decreased [Recovering/Resolving]

NARRATIVE: CASE EVENT DATE: 20190412
